FAERS Safety Report 13616050 (Version 2)
Quarter: 2018Q2

REPORT INFORMATION
  Report Type: Spontaneous
  Country: US (occurrence: US)
  Receive Date: 20170606
  Receipt Date: 20180521
  Transmission Date: 20180711
  Serious: No
  Sender: FDA-Public Use
  Company Number: US-TEVA-726968ACC

PATIENT
  Sex: Female

DRUGS (1)
  1. CYCLOBENZAPRINE HCL [Suspect]
     Active Substance: CYCLOBENZAPRINE HYDROCHLORIDE
     Dosage: TOOK OVER 5 YEARS AGO
     Route: 065

REACTIONS (2)
  - Fatigue [Recovered/Resolved]
  - Drug hypersensitivity [Unknown]
